FAERS Safety Report 4730695-4 (Version None)
Quarter: 2005Q3

REPORT INFORMATION
  Report Type: 
  Country: None (occurrence: None)
  Receive Date: 20050725
  Receipt Date: 20050224
  Transmission Date: 20060218
  Serious: No
  Sender: FDA-Public Use
  Company Number: USA050291794

PATIENT
  Sex: Female

DRUGS (2)
  1. STRATTERA [Suspect]
  2. ZOLOFT [Concomitant]

REACTIONS (1)
  - DRUG SCREEN FALSE POSITIVE [None]
